FAERS Safety Report 16315067 (Version 2)
Quarter: 2019Q2

REPORT INFORMATION
  Report Type: Spontaneous
  Country: US (occurrence: US)
  Receive Date: 20190515
  Receipt Date: 20190520
  Transmission Date: 20190711
  Serious: Yes (Hospitalization, Other)
  Sender: FDA-Public Use
  Company Number: US-PFIZER INC-2019203955

PATIENT
  Age: 54 Year
  Sex: Male

DRUGS (22)
  1. OXALIPLATIN. [Suspect]
     Active Substance: OXALIPLATIN
     Dosage: UNK, CYCLIC (29-SEP-???, CYCLE 4, FOLFFOX)
  2. OXALIPLATIN. [Suspect]
     Active Substance: OXALIPLATIN
     Dosage: UNK, CYCLIC (13-OCT-???, CYCLE 5, FOLFFOX)
  3. OXALIPLATIN. [Suspect]
     Active Substance: OXALIPLATIN
     Dosage: UNK, CYCLIC  (28-OCT-???, CYCLE 6, FOLFFOX)
  4. FLUOROURACIL. [Suspect]
     Active Substance: FLUOROURACIL
     Indication: METASTASES TO LUNG
     Dosage: UNK, CYCLIC (01-AUG-???, CYCLE 1, FOLFFOX)
  5. FLUOROURACIL. [Suspect]
     Active Substance: FLUOROURACIL
     Indication: METASTASES TO SPINE
     Dosage: UNK, CYCLIC (31-AUG-???, CYCLE 3, FOLFFOX)
  6. FOLINIC ACID [Suspect]
     Active Substance: LEUCOVORIN
     Dosage: UNK, CYCLIC (13-OCT-???, CYCLE 5, FOLFFOX)
  7. FLUOROURACIL. [Suspect]
     Active Substance: FLUOROURACIL
     Indication: METASTASES TO ABDOMINAL CAVITY
     Dosage: UNK, 6 CYCLES
  8. FOLINIC ACID [Suspect]
     Active Substance: LEUCOVORIN
     Indication: METASTASES TO SPINE
     Dosage: UNK, CYCLIC (01-AUG-??? CYCLE 1 FOLFOX)
  9. FOLINIC ACID [Suspect]
     Active Substance: LEUCOVORIN
     Dosage: UNK, CYCLIC (29-SEP-???, CYCLE 4, FOLFFOX)
  10. FLUOROURACIL. [Suspect]
     Active Substance: FLUOROURACIL
     Dosage: UNK, CYCLIC (28-OCT-???, CYCLE 6, FOLFFOX)
  11. FOLINIC ACID [Suspect]
     Active Substance: LEUCOVORIN
     Indication: METASTASES TO LUNG
     Dosage: UNK, CYCLIC (31-AUG-???, CYCLE 3, FOLFFOX)
  12. OXALIPLATIN. [Suspect]
     Active Substance: OXALIPLATIN
     Indication: METASTASES TO LUNG
     Dosage: UNK, CYCLIC (17-AUG-???, CYCLE 2, FOLFFOX)
  13. FLUOROURACIL. [Suspect]
     Active Substance: FLUOROURACIL
     Dosage: UNK, CYCLIC (13-OCT-???, CYCLE 5, FOLFFOX)
  14. FLUOROURACIL. [Suspect]
     Active Substance: FLUOROURACIL
     Dosage: UNK
  15. FOLINIC ACID [Suspect]
     Active Substance: LEUCOVORIN
     Indication: METASTASES TO ABDOMINAL CAVITY
     Dosage: UNK, 6 CYCLES
  16. OXALIPLATIN. [Suspect]
     Active Substance: OXALIPLATIN
     Indication: METASTASES TO ABDOMINAL CAVITY
     Dosage: UNK, 6 CYCLES
  17. OXALIPLATIN. [Suspect]
     Active Substance: OXALIPLATIN
     Indication: METASTASES TO SPINE
     Dosage: UNK, CYCLIC (01-AUG-???, CYCLE 1, FOLFFOX)
  18. FLUOROURACIL. [Suspect]
     Active Substance: FLUOROURACIL
     Dosage: UNK, CYCLIC (29-SEP-???, CYCLE 4, FOLFFOX)
  19. FOLINIC ACID [Suspect]
     Active Substance: LEUCOVORIN
     Indication: ADENOCARCINOMA
     Dosage: UNK, CYCLIC  (17-AUG-???, CYCLE 2, FOLFFOX)
  20. OXALIPLATIN. [Suspect]
     Active Substance: OXALIPLATIN
     Indication: ADENOCARCINOMA
     Dosage: UNK, CYCLIC (31-AUG-???, CYCLE 3, FOLFFOX)
  21. FLUOROURACIL. [Suspect]
     Active Substance: FLUOROURACIL
     Indication: ADENOCARCINOMA
     Dosage: UNK, CYCLIC (17-AUG-???, CYCLE 2, FOLFFOX)
  22. FOLINIC ACID [Suspect]
     Active Substance: LEUCOVORIN
     Dosage: UNK, CYCLIC (28-OCT-???, CYCLE 6, FOLFFOX)

REACTIONS (11)
  - Neutropenia [Recovering/Resolving]
  - Skin exfoliation [Recovering/Resolving]
  - Mucosal toxicity [Recovering/Resolving]
  - Recall phenomenon [Recovering/Resolving]
  - Weight decreased [Recovering/Resolving]
  - Erythema [Recovering/Resolving]
  - Septic shock [Recovering/Resolving]
  - Dysphagia [Recovering/Resolving]
  - Odynophagia [Recovering/Resolving]
  - Dysphonia [Recovering/Resolving]
  - Oesophageal candidiasis [Recovered/Resolved]
